FAERS Safety Report 4751570-5 (Version None)
Quarter: 2005Q3

REPORT INFORMATION
  Report Type: 
  Country: None (occurrence: None)
  Receive Date: 20050824
  Receipt Date: 20050609
  Transmission Date: 20060218
  Serious: Yes (Hospitalization)
  Sender: FDA-Public Use
  Company Number: FR-GLAXOSMITHKLINE-B0384215A

PATIENT
  Age: 52 Year
  Sex: Male
  Weight: 69 kg

DRUGS (20)
  1. EPIVIR [Suspect]
     Dosage: 150MG PER DAY
     Route: 048
     Dates: start: 20050523, end: 20050527
  2. ALLOPURINOL [Suspect]
     Dosage: 100MG PER DAY
     Route: 048
     Dates: start: 20050314, end: 20050329
  3. VIDEX [Suspect]
     Dosage: 125MG PER DAY
     Route: 048
     Dates: start: 20050523, end: 20050527
  4. KALETRA [Suspect]
     Dosage: 6UNIT PER DAY
     Route: 048
     Dates: start: 20050523, end: 20050527
  5. ZERIT [Suspect]
     Indication: ACQUIRED IMMUNODEFICIENCY SYNDROME
     Route: 065
     Dates: start: 20050323, end: 20050329
  6. INVIRASE [Suspect]
     Indication: ACQUIRED IMMUNODEFICIENCY SYNDROME
     Route: 065
     Dates: start: 20050323, end: 20050329
  7. PIRILENE [Suspect]
     Indication: PULMONARY TUBERCULOSIS
     Route: 065
     Dates: start: 20050216, end: 20050329
  8. NORVIR [Concomitant]
     Indication: ACQUIRED IMMUNODEFICIENCY SYNDROME
     Route: 065
     Dates: start: 20050323, end: 20050329
  9. AMLODIPINE BESYLATE [Concomitant]
     Route: 048
     Dates: end: 20050329
  10. DETENSIEL [Concomitant]
     Route: 048
     Dates: end: 20050329
  11. COAPROVEL [Concomitant]
     Route: 048
     Dates: end: 20050329
  12. LASIX [Concomitant]
     Route: 048
     Dates: end: 20050329
  13. KAYEXALATE [Concomitant]
     Route: 065
  14. MOPRAL [Concomitant]
     Route: 065
  15. RIMIFON [Concomitant]
     Indication: PULMONARY TUBERCULOSIS
     Route: 065
     Dates: start: 20050216, end: 20050329
  16. RIFADIN [Concomitant]
     Indication: PULMONARY TUBERCULOSIS
     Route: 065
     Dates: start: 20050216, end: 20050312
  17. DEXAMBUTOL [Concomitant]
     Indication: PULMONARY TUBERCULOSIS
     Route: 065
     Dates: start: 20050216, end: 20050329
  18. SOPROL [Concomitant]
     Route: 048
     Dates: start: 20050314, end: 20050329
  19. CIFLOX [Concomitant]
     Indication: PULMONARY TUBERCULOSIS
     Route: 065
     Dates: start: 20050412
  20. EPIVIR [Concomitant]
     Indication: ACQUIRED IMMUNODEFICIENCY SYNDROME
     Route: 048
     Dates: start: 20050323, end: 20050329

REACTIONS (14)
  - BLOOD PRESSURE SYSTOLIC DECREASED [None]
  - CONJUNCTIVITIS [None]
  - CONVULSION [None]
  - CORNEAL ABSCESS [None]
  - DYSPHAGIA [None]
  - DYSPNOEA [None]
  - GENERAL PHYSICAL HEALTH DETERIORATION [None]
  - KERATITIS [None]
  - LACRIMATION INCREASED [None]
  - PRURITUS [None]
  - RENAL FAILURE ACUTE [None]
  - STEVENS-JOHNSON SYNDROME [None]
  - STOMATITIS [None]
  - URTICARIA [None]
